FAERS Safety Report 19251246 (Version 2)
Quarter: 2021Q3

REPORT INFORMATION
  Report Type: Spontaneous
  Country: US (occurrence: US)
  Receive Date: 20210512
  Receipt Date: 20210713
  Transmission Date: 20211014
  Serious: Yes (Other)
  Sender: FDA-Public Use
  Company Number: US-IMPRIMIS NJOF-2110498

PATIENT

DRUGS (1)
  1. PREDNISOLONE?MOXIFLOXACIN?BROMFENAC STERILE OPHTHALMIC EYE DROPS [Suspect]
     Active Substance: BROMFENAC\MOXIFLOXACIN\PREDNISONE
     Route: 047

REACTIONS (1)
  - Iritis [Unknown]
